FAERS Safety Report 10047865 (Version 4)
Quarter: 2014Q2

REPORT INFORMATION
  Report Type: Spontaneous
  Country: US (occurrence: US)
  Receive Date: 20140331
  Receipt Date: 20140516
  Transmission Date: 20141212
  Serious: Yes (Hospitalization, Other)
  Sender: FDA-Public Use
  Company Number: US-BAXTER-2014BAX015223

PATIENT
  Sex: Male

DRUGS (6)
  1. DIANEAL LOW CALCIUM [Suspect]
     Indication: PERITONEAL DIALYSIS
     Route: 033
     Dates: start: 20130212
  2. DIANEAL LOW CALCIUM [Suspect]
     Route: 033
     Dates: start: 20130212
  3. DIANEAL LOW CALCIUM [Suspect]
     Indication: PERITONEAL DIALYSIS
     Route: 033
     Dates: start: 20130212
  4. DIANEAL LOW CALCIUM [Suspect]
     Route: 033
     Dates: start: 20130212
  5. DIANEAL PD2 [Suspect]
     Indication: PERITONEAL DIALYSIS
     Route: 033
  6. DIANEAL PD2 [Suspect]
     Indication: PERITONEAL DIALYSIS
     Route: 033

REACTIONS (5)
  - Diabetic complication [Unknown]
  - Post procedural complication [Unknown]
  - Dysphagia [Unknown]
  - Confusional state [Unknown]
  - Peritonitis [Recovered/Resolved]
